FAERS Safety Report 24418524 (Version 1)
Quarter: 2024Q4

REPORT INFORMATION
  Report Type: Spontaneous
  Country: CN (occurrence: CN)
  Receive Date: 20241009
  Receipt Date: 20241009
  Transmission Date: 20250115
  Serious: Yes (Hospitalization)
  Sender: ELI LILLY AND CO
  Company Number: CN-ELI_LILLY_AND_COMPANY-CN202409018380

PATIENT
  Age: 61 Year
  Sex: Female
  Weight: 53.3 kg

DRUGS (8)
  1. ABEMACICLIB [Suspect]
     Active Substance: ABEMACICLIB
     Indication: Platelet count decreased
     Dosage: 100 MG, BID
     Route: 048
     Dates: start: 20240902, end: 20240909
  2. ABEMACICLIB [Suspect]
     Active Substance: ABEMACICLIB
     Indication: Gastrointestinal haemorrhage
  3. ABEMACICLIB [Suspect]
     Active Substance: ABEMACICLIB
     Indication: Neoplasm malignant
  4. ABEMACICLIB [Suspect]
     Active Substance: ABEMACICLIB
     Indication: Breast cancer
  5. ABEMACICLIB [Suspect]
     Active Substance: ABEMACICLIB
     Indication: Malignant neoplasm of spinal cord
  6. ABEMACICLIB [Suspect]
     Active Substance: ABEMACICLIB
     Indication: Diabetes mellitus
  7. ABEMACICLIB [Suspect]
     Active Substance: ABEMACICLIB
     Indication: Thyroid mass
  8. ABEMACICLIB [Suspect]
     Active Substance: ABEMACICLIB
     Indication: Hepatic cyst

REACTIONS (4)
  - Liver injury [Recovering/Resolving]
  - Gamma-glutamyltransferase increased [Recovering/Resolving]
  - Aspartate aminotransferase increased [Recovering/Resolving]
  - Alanine aminotransferase increased [Recovering/Resolving]

NARRATIVE: CASE EVENT DATE: 20240909
